FAERS Safety Report 6129594-5 (Version None)
Quarter: 2009Q1

REPORT INFORMATION
  Report Type: 
  Country: None (occurrence: None)
  Receive Date: 20090324
  Receipt Date: 20090313
  Transmission Date: 20090719
  Serious: Yes (Death)
  Sender: FDA-Public Use
  Company Number: DE-SANOFI-SYNTHELABO-F01200900260

PATIENT
  Sex: Male

DRUGS (6)
  1. BUSERLIN ACETATE [Concomitant]
     Dosage: UNK
     Dates: end: 20070806
  2. ZOLEDRONIC ACID [Concomitant]
     Dosage: UNK
  3. FLUTAMIDE [Concomitant]
     Dosage: UNK
  4. ESTRAMUSTINE PHOSPHATE SODIUM [Concomitant]
     Dosage: UNK
  5. BICALUTAMIDE [Concomitant]
     Dosage: UNK
  6. ELIGARD [Suspect]
     Indication: PROSTATE CANCER
     Dosage: OMCE PER 6 MONTHS 45 MG
     Route: 058
     Dates: start: 20070806, end: 20070806

REACTIONS (1)
  - PROSTATE CANCER METASTATIC [None]
